FAERS Safety Report 4920783-1 (Version None)
Quarter: 2006Q1

REPORT INFORMATION
  Report Type: 
  Country: None (occurrence: None)
  Receive Date: 20060113
  Receipt Date: 20050921
  Transmission Date: 20060701
  Serious: No
  Sender: FDA-Public Use
  Company Number: 2005SP003138

PATIENT
  Age: 74 Year
  Sex: Female
  Weight: 77.1115 kg

DRUGS (1)
  1. LUNESTA [Suspect]
     Dosage: 3 MG;1X;ORAL
     Route: 048
     Dates: start: 20050920, end: 20050920

REACTIONS (4)
  - DRUG INEFFECTIVE [None]
  - HEADACHE [None]
  - MIDDLE INSOMNIA [None]
  - URTICARIA [None]
